FAERS Safety Report 24716916 (Version 3)
Quarter: 2025Q1

REPORT INFORMATION
  Report Type: Spontaneous
  Country: IN (occurrence: IN)
  Receive Date: 20241210
  Receipt Date: 20250115
  Transmission Date: 20250408
  Serious: Yes (Death, Other)
  Sender: PFIZER
  Company Number: IN-PFIZER INC-2019097485

PATIENT
  Age: 58 Year
  Sex: Female

DRUGS (15)
  1. CRIZOTINIB [Suspect]
     Active Substance: CRIZOTINIB
     Indication: Non-small cell lung cancer
     Route: 048
     Dates: start: 201507, end: 201610
  2. CRIZOTINIB [Suspect]
     Active Substance: CRIZOTINIB
     Dosage: 250 MG, 2X/DAY AFTER FOOD
     Route: 048
     Dates: start: 20151214
  3. CRIZOTINIB [Suspect]
     Active Substance: CRIZOTINIB
     Route: 065
     Dates: start: 20160213
  4. CRIZOTINIB [Suspect]
     Active Substance: CRIZOTINIB
     Dates: start: 201609, end: 201812
  5. CRIZOTINIB [Suspect]
     Active Substance: CRIZOTINIB
     Dosage: 1X/DAY
  6. LEVETIRACETAM [Concomitant]
     Active Substance: LEVETIRACETAM
     Dosage: 500 MG, 2X/DAY AFTER FOOD
  7. FUROSEMIDE\SPIRONOLACTONE [Concomitant]
     Active Substance: FUROSEMIDE\SPIRONOLACTONE
     Dosage: 50 MG, DAILY (1-0-1)
  8. ALLEGRA [Concomitant]
     Active Substance: FEXOFENADINE HYDROCHLORIDE
     Indication: Pruritus
  9. PAN [Concomitant]
     Indication: Gastrooesophageal reflux disease
     Dosage: 40 MG, 1X/DAY (1-0-0) BEFORE FOOD
  10. CALPOL T [Concomitant]
     Indication: Pain
     Dosage: 3 DF, 3X/DAY AFTER FOOD
  11. CALPOL T [Concomitant]
     Indication: Pyrexia
  12. LOPERAMIDE HYDROCHLORIDE [Concomitant]
     Active Substance: LOPERAMIDE HYDROCHLORIDE
     Indication: Diarrhoea
  13. CALCIUM CARBONATE\CHOLECALCIFEROL [Concomitant]
     Active Substance: CALCIUM CARBONATE\CHOLECALCIFEROL
     Dosage: 500 MG, 3X/DAY (1-1-1) AFTER FOOD DAILY
  14. DENOSUMAB [Concomitant]
     Active Substance: DENOSUMAB
     Dosage: 120 MG, MONTHLY
     Route: 058
  15. MEGESTROL ACETATE [Concomitant]
     Active Substance: MEGESTROL ACETATE
     Dosage: 80 MG, 1X/DAY
     Dates: start: 20220211

REACTIONS (4)
  - Death [Fatal]
  - Bradycardia [Unknown]
  - Oedema peripheral [Unknown]
  - Lymphoedema [Unknown]
